FAERS Safety Report 5504875-4 (Version None)
Quarter: 2007Q4

REPORT INFORMATION
  Report Type: 
  Country: None (occurrence: None)
  Receive Date: 20071102
  Receipt Date: 20071025
  Transmission Date: 20080405
  Serious: Yes (Hospitalization, Other)
  Sender: FDA-Public Use
  Company Number: PHBS2007JP17900

PATIENT

DRUGS (2)
  1. ZOMETA [Suspect]
     Indication: MULTIPLE MYELOMA
     Dosage: 4 MG, UNK
     Route: 042
     Dates: end: 20071002
  2. VELCADE [Suspect]
     Route: 042
     Dates: end: 20071005

REACTIONS (2)
  - DRUG ERUPTION [None]
  - PYREXIA [None]
